FAERS Safety Report 24909729 (Version 1)
Quarter: 2025Q1

REPORT INFORMATION
  Report Type: Spontaneous
  Country: GB (occurrence: GB)
  Receive Date: 20250131
  Receipt Date: 20250131
  Transmission Date: 20250409
  Serious: Yes (Other)
  Sender: pharmaAND
  Company Number: GB-MHRA-MED-202501161444169680-LKDYT

PATIENT
  Sex: Female

DRUGS (1)
  1. PEGASYS [Suspect]
     Active Substance: PEGINTERFERON ALFA-2A
     Indication: Product used for unknown indication

REACTIONS (3)
  - Dysarthria [Unknown]
  - Dysphagia [Not Recovered/Not Resolved]
  - Off label use [Recovered/Resolved]
